FAERS Safety Report 9494828 (Version 2)
Quarter: 2013Q3

REPORT INFORMATION
  Report Type: Spontaneous
  Country: US (occurrence: US)
  Receive Date: 20130903
  Receipt Date: 20130916
  Transmission Date: 20140515
  Serious: No
  Sender: FDA-Public Use
  Company Number: US-PFIZER INC-2013252103

PATIENT
  Age: 52 Year
  Sex: Female
  Weight: 104.31 kg

DRUGS (1)
  1. LYRICA [Suspect]
     Indication: FIBROMYALGIA
     Dosage: 75 MG, 2X/DAY
     Route: 048
     Dates: start: 201307

REACTIONS (3)
  - Oedema peripheral [Unknown]
  - Pain [Unknown]
  - Alopecia [Unknown]
